APPROVED DRUG PRODUCT: AMLODIPINE BESYLATE
Active Ingredient: AMLODIPINE BESYLATE
Strength: EQ 5MG BASE
Dosage Form/Route: TABLET;ORAL
Application: A078224 | Product #002
Applicant: PHARMOBEDIENT CONSULTING LLC
Approved: Feb 27, 2008 | RLD: No | RS: No | Type: DISCN